FAERS Safety Report 21877351 (Version 1)
Quarter: 2023Q1

REPORT INFORMATION
  Report Type: Spontaneous
  Country: MA (occurrence: MA)
  Receive Date: 20230118
  Receipt Date: 20230118
  Transmission Date: 20230418
  Serious: Yes (Other)
  Sender: FDA-Public Use
  Company Number: MA-Accord-283496

PATIENT
  Age: 76 Year
  Sex: Male

DRUGS (2)
  1. CISPLATIN [Suspect]
     Active Substance: CISPLATIN
     Indication: Small cell lung cancer
  2. ETOPOSIDE [Concomitant]
     Active Substance: ETOPOSIDE
     Indication: Small cell lung cancer

REACTIONS (4)
  - Toxic skin eruption [Recovered/Resolved]
  - Dermatitis psoriasiform [Recovered/Resolved]
  - Hyperkeratosis [Recovered/Resolved]
  - Parakeratosis [Recovered/Resolved]
